FAERS Safety Report 4560318-9 (Version None)
Quarter: 2005Q1

REPORT INFORMATION
  Report Type: 
  Country: None (occurrence: None)
  Receive Date: 20050119
  Receipt Date: 20050119
  Transmission Date: 20050727
  Serious: No
  Sender: FDA-Public Use
  Company Number: None

PATIENT
  Age: 42 Year
  Sex: Male
  Weight: 84 kg

DRUGS (2)
  1. VANCOMYCIN [Suspect]
     Indication: INFECTION
     Dosage: 1250 MG
     Dates: start: 20040628, end: 20040722
  2. VANCOMYCIN [Suspect]
     Indication: PNEUMONIA
     Dosage: 1250 MG
     Dates: start: 20040628, end: 20040722

REACTIONS (5)
  - DYSPNOEA [None]
  - HYPOTENSION [None]
  - INFUSION RELATED REACTION [None]
  - RASH [None]
  - TACHYCARDIA [None]
